FAERS Safety Report 17517449 (Version 1)
Quarter: 2020Q1

REPORT INFORMATION
  Report Type: Spontaneous
  Country: US (occurrence: US)
  Receive Date: 20200309
  Receipt Date: 20200309
  Transmission Date: 20200409
  Serious: Yes (Other)
  Sender: FDA-Public Use
  Company Number: None

PATIENT
  Age: 79 Year
  Sex: Female
  Weight: 41.85 kg

DRUGS (18)
  1. ELIQUIS [Concomitant]
     Active Substance: APIXABAN
  2. VENTOLIN [Concomitant]
     Active Substance: ALBUTEROL SULFATE
  3. FLUOROURACIL. [Concomitant]
     Active Substance: FLUOROURACIL
  4. DIAZEPAM. [Concomitant]
     Active Substance: DIAZEPAM
  5. ATIVAN [Concomitant]
     Active Substance: LORAZEPAM
  6. VITAMIN D3 [Concomitant]
     Active Substance: CHOLECALCIFEROL
  7. ANORO ELLIPTA [Concomitant]
     Active Substance: UMECLIDINIUM BROMIDE\VILANTEROL TRIFENATATE
  8. POTASSIUM CHLORIDE. [Concomitant]
     Active Substance: POTASSIUM CHLORIDE
  9. OXALIPLATIN. [Concomitant]
     Active Substance: OXALIPLATIN
  10. LOVENOX [Concomitant]
     Active Substance: ENOXAPARIN SODIUM
  11. TYLENOL [Concomitant]
     Active Substance: ACETAMINOPHEN
  12. ZOFRAN [Concomitant]
     Active Substance: ONDANSETRON HYDROCHLORIDE
  13. MUCINEX-DM [Concomitant]
  14. FENTANYL. [Concomitant]
     Active Substance: FENTANYL
  15. DEXAMETHASONE. [Concomitant]
     Active Substance: DEXAMETHASONE
  16. CAPECITABINE. [Suspect]
     Active Substance: CAPECITABINE
     Indication: RECTAL CANCER
     Route: 048
     Dates: start: 20190918, end: 20200308
  17. OXYCODONE [Concomitant]
     Active Substance: OXYCODONE
  18. CELEXA [Concomitant]
     Active Substance: CITALOPRAM HYDROBROMIDE

REACTIONS (1)
  - Disease progression [None]

NARRATIVE: CASE EVENT DATE: 20200309
